FAERS Safety Report 18899201 (Version 1)
Quarter: 2021Q1

REPORT INFORMATION
  Report Type: Spontaneous
  Country: None (occurrence: US)
  Receive Date: 20210216
  Receipt Date: 20210216
  Transmission Date: 20210420
  Serious: No
  Sender: FDA-Public Use
  Company Number: US-BIO PRODUCTS LABORATORY LTD-2106815

PATIENT
  Age: 19 Year
  Sex: Female

DRUGS (1)
  1. GAMMAPLEX [Suspect]
     Active Substance: HUMAN IMMUNOGLOBULIN G

REACTIONS (1)
  - Muscle spasms [Unknown]
